FAERS Safety Report 12632837 (Version 2)
Quarter: 2016Q3

REPORT INFORMATION
  Report Type: Spontaneous
  Country: US (occurrence: US)
  Receive Date: 20160808
  Receipt Date: 20160808
  Transmission Date: 20161109
  Serious: No
  Sender: FDA-Public Use
  Company Number: US-BEH-2015057193

PATIENT
  Sex: Female
  Weight: 91 kg

DRUGS (27)
  1. DIPHENHYDRAMINE. [Concomitant]
     Active Substance: DIPHENHYDRAMINE
  2. OMEPRAZOLE. [Concomitant]
     Active Substance: OMEPRAZOLE
  3. TEMAZEPAM. [Concomitant]
     Active Substance: TEMAZEPAM
  4. ZOLOFT [Concomitant]
     Active Substance: SERTRALINE HYDROCHLORIDE
  5. LOSARTAN POTASSIUM. [Concomitant]
     Active Substance: LOSARTAN POTASSIUM
  6. EPIPEN [Concomitant]
     Active Substance: EPINEPHRINE
  7. HYDROCODONE-ACETAMINOPHEN [Concomitant]
     Active Substance: ACETAMINOPHEN\HYDROCODONE
  8. ALBUTEROL SULF [Concomitant]
  9. ACETAMINOPHEN. [Concomitant]
     Active Substance: ACETAMINOPHEN
  10. KLONOPIN [Concomitant]
     Active Substance: CLONAZEPAM
  11. PRAVASTATIN. [Concomitant]
     Active Substance: PRAVASTATIN
  12. NORETHINDRONE. [Concomitant]
     Active Substance: NORETHINDRONE
  13. FLEXERIL [Concomitant]
     Active Substance: CYCLOBENZAPRINE HYDROCHLORIDE
  14. ACIDOPHILUS [Concomitant]
     Active Substance: LACTOBACILLUS ACIDOPHILUS
  15. XOLAIR [Concomitant]
     Active Substance: OMALIZUMAB
  16. FENOFIBRATE. [Concomitant]
     Active Substance: FENOFIBRATE
  17. CYCLOSPORINE. [Concomitant]
     Active Substance: CYCLOSPORINE
  18. LMX [Concomitant]
     Active Substance: LIDOCAINE
  19. LANTUS [Concomitant]
     Active Substance: INSULIN GLARGINE
  20. DICLOFENAC SOD DR [Concomitant]
  21. ZYRTEC [Concomitant]
     Active Substance: CETIRIZINE HYDROCHLORIDE
  22. L-LYSINE [Concomitant]
     Active Substance: LYSINE
  23. HIZENTRA [Suspect]
     Active Substance: HUMAN IMMUNOGLOBULIN G
     Indication: HYPOGAMMAGLOBULINAEMIA
     Route: 058
  24. ASMANEX [Concomitant]
     Active Substance: MOMETASONE FUROATE
  25. AMLODIPINE BESYLATE. [Concomitant]
     Active Substance: AMLODIPINE BESYLATE
  26. HIZENTRA [Suspect]
     Active Substance: HUMAN IMMUNOGLOBULIN G
     Indication: ASTHMA
     Route: 058
  27. METFORMIN [Concomitant]
     Active Substance: METFORMIN HYDROCHLORIDE

REACTIONS (1)
  - Bronchitis [Unknown]
